FAERS Safety Report 5935520-1 (Version None)
Quarter: 2008Q4

REPORT INFORMATION
  Report Type: 
  Country: None (occurrence: None)
  Receive Date: 20081028
  Receipt Date: 20081020
  Transmission Date: 20090506
  Serious: Yes (Other)
  Sender: FDA-Public Use
  Company Number: 2008AL011365

PATIENT
  Sex: Male

DRUGS (1)
  1. DIGOXIN [Suspect]
     Indication: ATRIAL FIBRILLATION
     Dosage: 0;25 MG UNK PO
     Route: 048
     Dates: start: 20080125

REACTIONS (6)
  - CHOLECYSTECTOMY [None]
  - HYPOPHAGIA [None]
  - MENTAL DISORDER [None]
  - NAUSEA [None]
  - PRODUCT QUALITY ISSUE [None]
  - WEIGHT DECREASED [None]
